FAERS Safety Report 25163695 (Version 1)
Quarter: 2025Q2

REPORT INFORMATION
  Report Type: Spontaneous
  Country: US (occurrence: US)
  Receive Date: 20250405
  Receipt Date: 20250405
  Transmission Date: 20250716
  Serious: No
  Sender: AILEX PHARMACEUTICALS
  Company Number: AP-2025-US-6346

PATIENT
  Sex: Female

DRUGS (1)
  1. CROMOLYN SODIUM [Suspect]
     Active Substance: CROMOLYN SODIUM
     Indication: Mast cell activation syndrome
     Route: 048

REACTIONS (2)
  - Headache [Unknown]
  - Cough [Unknown]
